FAERS Safety Report 12891236 (Version 1)
Quarter: 2016Q4

REPORT INFORMATION
  Report Type: Spontaneous
  Country: US (occurrence: US)
  Receive Date: 20161026
  Receipt Date: 20161026
  Transmission Date: 20170207
  Serious: Yes (Other)
  Sender: FDA-Public Use
  Company Number: None

PATIENT
  Age: 12 Year
  Sex: Male
  Weight: 39.6 kg

DRUGS (4)
  1. TEGRETOL [Suspect]
     Active Substance: CARBAMAZEPINE
     Indication: ANGER
     Route: 048
     Dates: start: 20161010, end: 20161022
  2. TEGRETOL [Suspect]
     Active Substance: CARBAMAZEPINE
     Indication: AGGRESSION
     Route: 048
     Dates: start: 20161010, end: 20161022
  3. SEROQUEL [Concomitant]
     Active Substance: QUETIAPINE FUMARATE
  4. COLONDIENE [Concomitant]

REACTIONS (3)
  - Petechiae [None]
  - Platelet count decreased [None]
  - Rash generalised [None]

NARRATIVE: CASE EVENT DATE: 20161022
